FAERS Safety Report 8184963-7 (Version None)
Quarter: 2012Q1

REPORT INFORMATION
  Report Type: 
  Country: None (occurrence: None)
  Receive Date: 20120305
  Receipt Date: 20120224
  Transmission Date: 20120608
  Serious: Yes (Other)
  Sender: FDA-Public Use
  Company Number: JP-GLAXOSMITHKLINE-B0784912A

PATIENT
  Sex: Female

DRUGS (1)
  1. ALLERMIST [Suspect]
     Indication: RHINITIS ALLERGIC
     Dosage: 4IUAX PER DAY
     Route: 045
     Dates: start: 20110101

REACTIONS (2)
  - TRANSIENT ISCHAEMIC ATTACK [None]
  - DIZZINESS [None]
